FAERS Safety Report 13748936 (Version 1)
Quarter: 2017Q3

REPORT INFORMATION
  Report Type: Spontaneous
  Country: US (occurrence: US)
  Receive Date: 20170712
  Receipt Date: 20170712
  Transmission Date: 20171127
  Serious: Yes (Hospitalization)
  Sender: FDA-Public Use
  Company Number: None

PATIENT
  Age: 14 Year
  Sex: Male
  Weight: 106 kg

DRUGS (1)
  1. ENBREL [Suspect]
     Active Substance: ETANERCEPT

REACTIONS (12)
  - Nausea [None]
  - Decreased appetite [None]
  - Food poisoning [None]
  - Hyperglycaemia [None]
  - Back pain [None]
  - Constipation [None]
  - Glycosylated haemoglobin increased [None]
  - Abdominal pain lower [None]
  - Diarrhoea [None]
  - Vomiting [None]
  - Pancreatic necrosis [None]
  - Abdominal pain [None]

NARRATIVE: CASE EVENT DATE: 20170707
